FAERS Safety Report 24419347 (Version 2)
Quarter: 2024Q4

REPORT INFORMATION
  Report Type: Spontaneous
  Country: US (occurrence: US)
  Receive Date: 20241009
  Receipt Date: 20241105
  Transmission Date: 20250115
  Serious: No
  Sender: APOTEX
  Company Number: US-APOTEX-2024AP011457

PATIENT
  Sex: Male

DRUGS (2)
  1. IPRATROPIUM BROMIDE [Suspect]
     Active Substance: IPRATROPIUM BROMIDE
     Indication: Rhinorrhoea
     Dosage: 4 DOSAGE FORM, QID (TWO SPRAYS EACH NOSTRIL QID)
     Route: 045
  2. IPRATROPIUM BROMIDE [Suspect]
     Active Substance: IPRATROPIUM BROMIDE
     Dosage: 4 DOSAGE FORM, QID (TWO SPRAYS EACH NOSTRIL QID)
     Route: 045
     Dates: start: 202409

REACTIONS (2)
  - Product dose omission issue [Unknown]
  - Product delivery mechanism issue [Unknown]

NARRATIVE: CASE EVENT DATE: 20240101
